FAERS Safety Report 6447342-6 (Version None)
Quarter: 2009Q4

REPORT INFORMATION
  Report Type: 
  Country: None (occurrence: None)
  Receive Date: 20091119
  Receipt Date: 20091109
  Transmission Date: 20100525
  Serious: Yes (Life-Threatening, Hospitalization, Other)
  Sender: FDA-Public Use
  Company Number: US-AMGEN-US369325

PATIENT
  Sex: Female
  Weight: 77.2 kg

DRUGS (42)
  1. ENBREL [Suspect]
     Indication: PSORIASIS
     Route: 058
     Dates: start: 20060222, end: 20070901
  2. POTASSIUM CHLORIDE [Concomitant]
  3. TEMOVATE [Concomitant]
     Dates: start: 20060222
  4. DOVONEX [Concomitant]
     Dates: start: 20060222
  5. PREDNISONE [Concomitant]
     Dates: start: 20060222
  6. MOBIC [Concomitant]
     Dates: start: 20060222
  7. LEVOXYL [Concomitant]
  8. METHOTREXATE [Concomitant]
     Dates: start: 20011214
  9. EUCERIN [Concomitant]
     Route: 061
  10. LEXAPRO [Concomitant]
     Route: 065
  11. GARAMYCIN [Concomitant]
     Route: 065
  12. SOLU-CORTEF [Concomitant]
     Route: 065
  13. LOVENOX [Concomitant]
     Route: 065
  14. BUMEX [Concomitant]
     Route: 065
  15. PROVENTIL-HFA [Concomitant]
     Route: 065
  16. MAALOX [Concomitant]
     Route: 065
  17. BENADRYL [Concomitant]
     Dates: end: 20070620
  18. ATIVAN [Concomitant]
     Route: 047
  19. MULTI-VITAMINS [Concomitant]
     Route: 048
  20. ALBUTEROL + IPRATROPIUM INHALER [Concomitant]
     Route: 055
  21. PROTONIX [Concomitant]
  22. ZINC SULFATE [Concomitant]
  23. ASPIRIN [Concomitant]
  24. REGLAN [Concomitant]
  25. PROTOPIC [Concomitant]
  26. DEXTROSE 50% [Concomitant]
  27. XANAX [Concomitant]
     Route: 065
  28. DEMEROL [Concomitant]
     Route: 065
     Dates: start: 20070501
  29. DIPRIVAN [Concomitant]
  30. ZOFRAN [Concomitant]
     Route: 065
  31. SERAX [Concomitant]
  32. VISTARIL [Concomitant]
     Route: 065
  33. VERSED [Concomitant]
     Dates: start: 20070501
  34. BICARBONATE [Concomitant]
     Dates: start: 20071107
  35. CALCIUM CHLORIDE ANHYDROUS [Concomitant]
     Dates: start: 20071107
  36. ASCORBIC ACID [Concomitant]
  37. COREG [Concomitant]
  38. FOLIC ACID [Concomitant]
  39. AMBIEN [Concomitant]
  40. CORMAX [Concomitant]
  41. PRILOSEC [Concomitant]
  42. EXFORGE [Concomitant]
     Dates: end: 20070806

REACTIONS (47)
  - ACINETOBACTER BACTERAEMIA [None]
  - ATRIAL FIBRILLATION [None]
  - CANDIDIASIS [None]
  - CARDIAC FAILURE CONGESTIVE [None]
  - CARDIOGENIC SHOCK [None]
  - CARDIOMEGALY [None]
  - CELLULITIS [None]
  - CEREBROVASCULAR ACCIDENT [None]
  - CHOLELITHIASIS [None]
  - CHRONIC OBSTRUCTIVE PULMONARY DISEASE [None]
  - CORONARY ARTERY DISEASE [None]
  - DEPRESSION [None]
  - DERMATITIS PSORIASIFORM [None]
  - DRUG ERUPTION [None]
  - ENDOCARDITIS STAPHYLOCOCCAL [None]
  - GASTROINTESTINAL HAEMORRHAGE [None]
  - GASTROOESOPHAGEAL REFLUX DISEASE [None]
  - HEART VALVE INCOMPETENCE [None]
  - HYPERKALAEMIA [None]
  - HYPERTENSION [None]
  - LARYNGEAL STENOSIS [None]
  - LUNG INFECTION PSEUDOMONAL [None]
  - LYMPHADENOPATHY [None]
  - MALNUTRITION [None]
  - MENINGITIS STAPHYLOCOCCAL [None]
  - MENTAL DISORDER [None]
  - MYOCARDIAL INFARCTION [None]
  - PLEURAL EFFUSION [None]
  - PSORIASIS [None]
  - PULMONARY HYPERTENSION [None]
  - RENAL FAILURE ACUTE [None]
  - RENAL FAILURE CHRONIC [None]
  - RESPIRATORY FAILURE [None]
  - SEPTIC SHOCK [None]
  - STAPHYLOCOCCAL BACTERAEMIA [None]
  - STAPHYLOCOCCAL INFECTION [None]
  - STAPHYLOCOCCAL SCALDED SKIN SYNDROME [None]
  - STRESS ULCER [None]
  - THROMBOCYTOPENIA [None]
  - TOOTH FRACTURE [None]
  - TOOTH INFECTION [None]
  - TRACHEAL HAEMORRHAGE [None]
  - TRICUSPID VALVE INCOMPETENCE [None]
  - UPPER RESPIRATORY TRACT INFECTION [None]
  - URINARY TRACT INFECTION [None]
  - VISION BLURRED [None]
  - WEIGHT INCREASED [None]
